FAERS Safety Report 5624992-8 (Version None)
Quarter: 2008Q1

REPORT INFORMATION
  Report Type: 
  Country: None (occurrence: None)
  Receive Date: 20080208
  Receipt Date: 20080201
  Transmission Date: 20080703
  Serious: Yes (Hospitalization)
  Sender: FDA-Public Use
  Company Number: 062-21880-08020005

PATIENT
  Age: 69 Year
  Sex: Male
  Weight: 108 kg

DRUGS (2)
  1. REVLIMID [Suspect]
     Indication: MYELODYSPLASTIC SYNDROME
     Dosage: 25 MG, DAILY, ORAL
     Route: 048
     Dates: start: 20080114, end: 20080121
  2. ANTICOAGULANT (ANTICOAGULANT SODIUM CITRATE) [Concomitant]

REACTIONS (8)
  - BACK PAIN [None]
  - BLOOD BILIRUBIN INCREASED [None]
  - BONE PAIN [None]
  - GAMMA-GLUTAMYLTRANSFERASE INCREASED [None]
  - GENERAL PHYSICAL HEALTH DETERIORATION [None]
  - HAEMOGLOBIN DECREASED [None]
  - JAUNDICE [None]
  - THROMBOCYTOPENIA [None]
